FAERS Safety Report 19041223 (Version 1)
Quarter: 2021Q1

REPORT INFORMATION
  Report Type: Spontaneous
  Country: FR (occurrence: FR)
  Receive Date: 20210323
  Receipt Date: 20210323
  Transmission Date: 20210420
  Serious: Yes (Disabling)
  Sender: FDA-Public Use
  Company Number: FR-TEVA-2021-FR-1892724

PATIENT
  Age: 84 Year
  Sex: Male
  Weight: 71 kg

DRUGS (1)
  1. CLOZAPINE. [Suspect]
     Active Substance: CLOZAPINE
     Indication: DEMENTIA WITH LEWY BODIES
     Dosage: 25 MG
     Route: 048
     Dates: start: 201908

REACTIONS (2)
  - Fall [Not Recovered/Not Resolved]
  - Cerebrovascular accident [Not Recovered/Not Resolved]

NARRATIVE: CASE EVENT DATE: 20210226
